FAERS Safety Report 5736254-9 (Version None)
Quarter: 2008Q2

REPORT INFORMATION
  Report Type: 
  Country: None (occurrence: None)
  Receive Date: 20080509
  Receipt Date: 20080509
  Transmission Date: 20081010
  Serious: No
  Sender: FDA-Public Use
  Company Number: None

PATIENT
  Age: 34 Year
  Sex: Female
  Weight: 62.5964 kg

DRUGS (1)
  1. CREST PROHEALTH MOUTH RINSE   PROCTER + GAMBLE [Suspect]
     Indication: DENTAL CARE
     Dosage: RECOMMENDED DOSE  2 X PER DAY
     Dates: start: 20080429, end: 20080507

REACTIONS (3)
  - DYSGEUSIA [None]
  - GLOSSITIS [None]
  - GLOSSODYNIA [None]
